FAERS Safety Report 15706533 (Version 1)
Quarter: 2018Q4

REPORT INFORMATION
  Report Type: Spontaneous
  Country: FR (occurrence: FR)
  Receive Date: 20181210
  Receipt Date: 20181210
  Transmission Date: 20190205
  Serious: Yes (Hospitalization)
  Sender: FDA-Public Use
  Company Number: FR-SA-2018SA331899

PATIENT
  Age: 77 Year
  Sex: Female
  Weight: 87.5 kg

DRUGS (5)
  1. XANAX [Concomitant]
     Active Substance: ALPRAZOLAM
     Indication: PROPHYLAXIS
     Dosage: 1 DF, QD
     Route: 048
     Dates: start: 20181030, end: 20181101
  2. CORTANCYL [Concomitant]
     Active Substance: PREDNISONE
     Indication: PROPHYLAXIS
     Dosage: 100 MG, QD
     Route: 048
     Dates: start: 20181030, end: 20181101
  3. CAPECITABINE. [Concomitant]
     Active Substance: CAPECITABINE
     Indication: BILIARY NEOPLASM
     Dosage: 3.6 G, QD
     Route: 048
     Dates: start: 20181031, end: 20181115
  4. OXALIPLATIN. [Suspect]
     Active Substance: OXALIPLATIN
     Indication: BILIARY NEOPLASM
     Dosage: 200 MG, QM
     Route: 042
     Dates: start: 20181031, end: 20181031
  5. ZOPHREN [ONDANSETRON HYDROCHLORIDE] [Concomitant]
     Active Substance: ONDANSETRON
     Indication: PROPHYLAXIS
     Dosage: 8 MG, QD
     Route: 048
     Dates: start: 20181031, end: 20181101

REACTIONS (3)
  - Laryngospasm [Recovered/Resolved]
  - Lip oedema [Recovered/Resolved]
  - Acute respiratory distress syndrome [Recovered/Resolved]

NARRATIVE: CASE EVENT DATE: 20181030
